FAERS Safety Report 26064293 (Version 1)
Quarter: 2025Q4

REPORT INFORMATION
  Report Type: Spontaneous
  Country: US (occurrence: None)
  Receive Date: 20251118
  Receipt Date: 20251118
  Transmission Date: 20260118
  Serious: Yes (Disabling)
  Sender: FDA-CTU
  Company Number: None

PATIENT
  Age: 50 Year
  Sex: Female
  Weight: 69.75 kg

DRUGS (10)
  1. LEVOFLOXACIN [Suspect]
     Active Substance: LEVOFLOXACIN
     Indication: Urinary tract infection
     Dosage: OTHER QUANTITY : 3 TABLET(S);?FREQUENCY : DAILY;?
     Route: 048
  2. METFORMIN [Concomitant]
     Active Substance: METFORMIN HYDROCHLORIDE
  3. SYNTHROID [Concomitant]
     Active Substance: LEVOTHYROXINE SODIUM
  4. CYTOMEL [Concomitant]
     Active Substance: LIOTHYRONINE SODIUM
  5. Wes-phos [Concomitant]
  6. VITAMIN E [Concomitant]
     Active Substance: .ALPHA.-TOCOPHEROL
  7. GLUTATHIONE [Concomitant]
     Active Substance: GLUTATHIONE
  8. MAGNESIUM [Concomitant]
     Active Substance: MAGNESIUM
  9. POTASSIUM [Concomitant]
     Active Substance: POTASSIUM
  10. CRANBERRY [Concomitant]
     Active Substance: CRANBERRY

REACTIONS (11)
  - Arthralgia [None]
  - Paraesthesia [None]
  - Asthenia [None]
  - Muscle spasms [None]
  - Muscle spasms [None]
  - Back pain [None]
  - Chills [None]
  - Tendon pain [None]
  - Gait disturbance [None]
  - Anxiety [None]
  - Neuropathy peripheral [None]

NARRATIVE: CASE EVENT DATE: 20251118
